FAERS Safety Report 9868886 (Version 1)
Quarter: 2014Q1

REPORT INFORMATION
  Report Type: Report from Study
  Country: DE (occurrence: DE)
  Receive Date: 20140204
  Receipt Date: 20140204
  Transmission Date: 20141002
  Serious: Yes (Hospitalization)
  Sender: FDA-Public Use
  Company Number: DE-UCBSA-111204

PATIENT
  Age: 81 Year
  Sex: Female
  Weight: 72 kg

DRUGS (8)
  1. NEUPRO [Suspect]
     Indication: RESTLESS LEGS SYNDROME
     Route: 062
  2. NEUPRO [Suspect]
     Indication: RESTLESS LEGS SYNDROME
     Route: 062
  3. LEVODOPA COMP [Concomitant]
     Indication: RESTLESS LEGS SYNDROME
     Dosage: 50/200 MG
     Route: 048
  4. TILIDIN AL [Concomitant]
     Indication: RESTLESS LEGS SYNDROME
  5. METOPROLOL ZOT [Concomitant]
     Indication: HYPERTENSION
     Route: 048
  6. LISILICH [Concomitant]
     Indication: HYPERTENSION
     Route: 048
  7. TORASEMIDE [Concomitant]
     Indication: HYPERTENSION
     Route: 048
  8. XARELTO [Concomitant]
     Indication: ATRIAL FIBRILLATION
     Route: 048

REACTIONS (3)
  - Atrial fibrillation [Unknown]
  - Cataract [Unknown]
  - Overdose [Not Recovered/Not Resolved]
